FAERS Safety Report 9053472 (Version 1)
Quarter: 2013Q1

REPORT INFORMATION
  Report Type: Spontaneous
  Country: US (occurrence: None)
  Receive Date: 20130117
  Receipt Date: 20130117
  Transmission Date: 20140127
  Serious: Yes (Death, Other)
  Sender: FDA-Public Use
  Company Number: 2013MA000196

PATIENT
  Age: 56 Year
  Sex: Male

DRUGS (4)
  1. KADIAN [Suspect]
     Indication: PRODUCT USED FOR UNKNOWN INDICATION
     Dosage: PARN
     Route: 048
  2. METHADONE [Suspect]
     Dosage: PARN
     Route: 048
  3. HEROIN [Suspect]
     Route: 048
  4. DIAZEPAM TABLETS [Suspect]
     Route: 048

REACTIONS (1)
  - Death [None]
